FAERS Safety Report 7996035-2 (Version None)
Quarter: 2011Q4

REPORT INFORMATION
  Report Type: 
  Country: None (occurrence: None)
  Receive Date: 20111220
  Receipt Date: 20111206
  Transmission Date: 20120403
  Serious: Yes (Other)
  Sender: FDA-Public Use
  Company Number: PHHY2011CH108770

PATIENT
  Age: 44 Year
  Sex: Male

DRUGS (5)
  1. EVEROLIMUS [Concomitant]
     Indication: HEART TRANSPLANT
     Dosage: 1.5 MG, QD
  2. AZATHIOPRINE [Concomitant]
     Dosage: 25 MG, QD
  3. CYCLOSPORINE [Suspect]
     Indication: HEART TRANSPLANT
     Dosage: 200 MG, QD
  4. CYCLOSPORINE [Suspect]
     Dosage: 50 MG, QD
  5. AZATHIOPRINE [Concomitant]
     Indication: HEART TRANSPLANT
     Dosage: 12.5 MG, QD

REACTIONS (16)
  - SQUAMOUS CELL CARCINOMA [None]
  - OSTEOMYELITIS [None]
  - WOUND SECRETION [None]
  - SWELLING [None]
  - DIABETIC NEUROPATHY [None]
  - ERYSIPELAS [None]
  - DIABETIC FOOT [None]
  - STAPHYLOCOCCAL INFECTION [None]
  - PSEUDOMONAS INFECTION [None]
  - DIABETES MELLITUS [None]
  - FISTULA [None]
  - CELLULITIS [None]
  - NECROSIS [None]
  - DIABETES MELLITUS INADEQUATE CONTROL [None]
  - IMPAIRED HEALING [None]
  - HYPERKERATOSIS [None]
